FAERS Safety Report 23315701 (Version 1)
Quarter: 2023Q4

REPORT INFORMATION
  Report Type: Other
  Country: JP (occurrence: JP)
  Receive Date: 20231219
  Receipt Date: 20231219
  Transmission Date: 20240110
  Serious: Yes (Hospitalization, Other)
  Sender: FDA-Public Use
  Company Number: JP-Merck Healthcare KGaA-2023494125

PATIENT
  Age: 77 Year
  Sex: Male

DRUGS (2)
  1. TEPMETKO [Suspect]
     Active Substance: TEPOTINIB HYDROCHLORIDE
     Indication: Lung adenocarcinoma
     Dosage: 500 MG/DAY.
     Route: 048
  2. TEPMETKO [Suspect]
     Active Substance: TEPOTINIB HYDROCHLORIDE
     Dosage: 250 MG/DAY.
     Route: 048

REACTIONS (4)
  - Pleural disorder [Unknown]
  - Renal impairment [Unknown]
  - Pneumonia [Unknown]
  - Pneumothorax [Unknown]
